FAERS Safety Report 7042821-5 (Version None)
Quarter: 2010Q4

REPORT INFORMATION
  Report Type: 
  Country: None (occurrence: None)
  Receive Date: 20101013
  Receipt Date: 20100305
  Transmission Date: 20110411
  Serious: No
  Sender: FDA-Public Use
  Company Number: US-ASTRAZENECA-2010SE09629

PATIENT
  Age: 64 Year
  Sex: Male
  Weight: 79.4 kg

DRUGS (1)
  1. SYMBICORT [Suspect]
     Route: 055
     Dates: start: 20100201, end: 20100303

REACTIONS (3)
  - GENERAL PHYSICAL HEALTH DETERIORATION [None]
  - IMPAIRED WORK ABILITY [None]
  - MUSCLE SPASMS [None]
